FAERS Safety Report 7357085-2 (Version None)
Quarter: 2011Q1

REPORT INFORMATION
  Report Type: 
  Country: None (occurrence: None)
  Receive Date: 20110317
  Receipt Date: 20100212
  Transmission Date: 20110831
  Serious: No
  Sender: FDA-Public Use
  Company Number: US-BAYER-201014664NA

PATIENT
  Sex: Female

DRUGS (1)
  1. MIRENA [Suspect]
     Indication: CONTRACEPTION
     Dosage: 20 ?G/D, CONT
     Dates: start: 20100108, end: 20100212

REACTIONS (6)
  - NAUSEA [None]
  - DEVICE EXPULSION [None]
  - VOMITING [None]
  - DYSMENORRHOEA [None]
  - GENITAL HAEMORRHAGE [None]
  - TENSION [None]
